FAERS Safety Report 12896876 (Version 2)
Quarter: 2016Q4

REPORT INFORMATION
  Report Type: Spontaneous
  Country: GB (occurrence: GB)
  Receive Date: 20161031
  Receipt Date: 20161205
  Transmission Date: 20170207
  Serious: No
  Sender: FDA-Public Use
  Company Number: GB-FERRINGPH-2016FE05712

PATIENT

DRUGS (4)
  1. NOREPINEPHRINE [Concomitant]
     Active Substance: NOREPINEPHRINE\NOREPINEPHRINE BITARTRATE
     Indication: PRODUCT USED FOR UNKNOWN INDICATION
  2. ARGIPRESSIN [Concomitant]
     Active Substance: ARGIPRESSIN
     Indication: PRODUCT USED FOR UNKNOWN INDICATION
     Dosage: 3-6 ML/H OF A 20U/50ML INFUSION
     Dates: end: 20161020
  3. HYDROCORTISONE. [Concomitant]
     Active Substance: HYDROCORTISONE
     Indication: PRODUCT USED FOR UNKNOWN INDICATION
  4. DESMOPRESSIN [Suspect]
     Active Substance: DESMOPRESSIN
     Indication: DIABETES INSIPIDUS
     Dosage: 48 ?G, ONCE/SINGLE
     Route: 042
     Dates: start: 20161020, end: 20161020

REACTIONS (1)
  - Prescribed overdose [Recovered/Resolved]

NARRATIVE: CASE EVENT DATE: 20161020
